FAERS Safety Report 20945241 (Version 1)
Quarter: 2022Q2

REPORT INFORMATION
  Report Type: Spontaneous
  Country: US (occurrence: US)
  Receive Date: 20220610
  Receipt Date: 20220610
  Transmission Date: 20220720
  Serious: Yes (Life-Threatening, Hospitalization, Other)
  Sender: FDA-Public Use
  Company Number: US-BRISTOL-MYERS SQUIBB COMPANY-2022-050693

PATIENT
  Age: 67 Year
  Sex: Female

DRUGS (12)
  1. REVLIMID [Suspect]
     Active Substance: LENALIDOMIDE
     Indication: Plasma cell myeloma
     Dosage: FREQUENCY DAILY
     Route: 048
     Dates: start: 20220113
  2. XGEVA [Concomitant]
     Active Substance: DENOSUMAB
     Dosage: 120 MG/1.7ML INJ 1.7 ML
  3. ACYCLOVIR [Concomitant]
     Active Substance: ACYCLOVIR
  4. AMLODIPINE BESYLATE [Concomitant]
     Active Substance: AMLODIPINE BESYLATE
  5. DARZALEX [Concomitant]
     Active Substance: DARATUMUMAB
     Dosage: 400 MG/20ML INJ 1 VIAL
  6. DEXAMETHASONE [Concomitant]
     Active Substance: DEXAMETHASONE
  7. DICLOFENAC [Concomitant]
     Active Substance: DICLOFENAC
     Dosage: DR TABLETS
  8. DOXYCLINE [DOXYCYCLINE HYCLATE] [Concomitant]
  9. IBUPROFEN [Concomitant]
     Active Substance: IBUPROFEN
  10. OMEPRAZOLE [Concomitant]
     Active Substance: OMEPRAZOLE
  11. SYNTHROID [Concomitant]
     Active Substance: LEVOTHYROXINE SODIUM
     Dosage: 50 MCG
  12. TYLENOL [Concomitant]
     Active Substance: ACETAMINOPHEN
     Dosage: 500 MG E/S

REACTIONS (6)
  - Confusional state [Unknown]
  - Delirium [Unknown]
  - Mental disorder [Unknown]
  - Hydrocephalus [Unknown]
  - Cerebral haemorrhage [Unknown]
  - Cerebrospinal fluid leakage [Unknown]

NARRATIVE: CASE EVENT DATE: 20220501
